FAERS Safety Report 6502901-7 (Version None)
Quarter: 2009Q4

REPORT INFORMATION
  Report Type: 
  Country: None (occurrence: None)
  Receive Date: 20091217
  Receipt Date: 20091208
  Transmission Date: 20100525
  Serious: Yes (Hospitalization)
  Sender: FDA-Public Use
  Company Number: DK-BAYER-200935496GPV

PATIENT
  Age: 36 Year
  Sex: Female

DRUGS (4)
  1. MIRENA [Suspect]
     Indication: DRUG USE FOR UNKNOWN INDICATION
     Route: 015
     Dates: start: 20080525, end: 20081003
  2. EMPERAL [Concomitant]
     Indication: DEPRESSION
     Dosage: 30 TABLETS
     Route: 048
  3. PRIMPERAN TAB [Concomitant]
     Indication: DRUG USE FOR UNKNOWN INDICATION
  4. ONDANSETRON [Concomitant]
     Indication: DRUG USE FOR UNKNOWN INDICATION
     Dosage: MAXIMUM ONCE PER DAY

REACTIONS (3)
  - BLOOD PROLACTIN INCREASED [None]
  - DEPRESSION [None]
  - HYPERBILIRUBINAEMIA [None]
